FAERS Safety Report 7434223-4 (Version None)
Quarter: 2011Q2

REPORT INFORMATION
  Report Type: 
  Country: None (occurrence: None)
  Receive Date: 20110425
  Receipt Date: 20110419
  Transmission Date: 20111010
  Serious: No
  Sender: FDA-Public Use
  Company Number: US-PFIZER INC-2011018014

PATIENT
  Sex: Female
  Weight: 61.224 kg

DRUGS (1)
  1. NICOTROL [Suspect]
     Indication: SMOKING CESSATION THERAPY
     Dosage: UNK
     Route: 045
     Dates: start: 20110123

REACTIONS (3)
  - SNEEZING [None]
  - LACRIMATION INCREASED [None]
  - COUGH [None]
